FAERS Safety Report 8415436-1 (Version None)
Quarter: 2012Q2

REPORT INFORMATION
  Report Type: 
  Country: None (occurrence: None)
  Receive Date: 20120606
  Receipt Date: 20120601
  Transmission Date: 20120825
  Serious: Yes (Other)
  Sender: FDA-Public Use
  Company Number: PHHY2012BR046427

PATIENT
  Sex: Female

DRUGS (1)
  1. FORMOTEROL FUMARATE [Suspect]
     Indication: BRONCHITIS
     Dosage: ONCE A DAY
     Dates: start: 20111201

REACTIONS (4)
  - UPPER LIMB FRACTURE [None]
  - FALL [None]
  - BALANCE DISORDER [None]
  - HUMERUS FRACTURE [None]
